FAERS Safety Report 11885085 (Version 2)
Quarter: 2016Q1

REPORT INFORMATION
  Report Type: Spontaneous
  Country: US (occurrence: US)
  Receive Date: 20160104
  Receipt Date: 20160120
  Transmission Date: 20160526
  Serious: No
  Sender: FDA-Public Use
  Company Number: US-BAYER-2015-498212

PATIENT
  Age: 90 Year
  Sex: Male
  Weight: 63.49 kg

DRUGS (3)
  1. METAMUCIL [Concomitant]
     Active Substance: PLANTAGO SEED
  2. MIRALAX [Suspect]
     Active Substance: POLYETHYLENE GLYCOL 3350
     Dosage: 1 DF, QOD
     Route: 048
  3. STOOL SOFTENER [Concomitant]
     Active Substance: DOCUSATE CALCIUM

REACTIONS (9)
  - Abnormal sensation in eye [None]
  - Nasal discomfort [None]
  - Diarrhoea [None]
  - Product use issue [None]
  - Lacrimation increased [None]
  - Gastrointestinal motility disorder [None]
  - Faeces soft [None]
  - Abnormal faeces [None]
  - Nasal congestion [None]
